FAERS Safety Report 6438364-X (Version None)
Quarter: 2009Q4

REPORT INFORMATION
  Report Type: 
  Country: None (occurrence: None)
  Receive Date: 20091112
  Receipt Date: 20091105
  Transmission Date: 20100525
  Serious: Yes (Hospitalization)
  Sender: FDA-Public Use
  Company Number: US-KINGPHARMUSA00001-K200901386

PATIENT
  Age: 87 Year
  Sex: Female

DRUGS (6)
  1. ALTACE [Suspect]
     Indication: HYPERTENSION
     Dosage: 3.75 MG, QD
     Route: 048
     Dates: end: 20090101
  2. ALTACE [Suspect]
     Dosage: 2.5 MG, QD
     Route: 048
     Dates: start: 20090101
  3. CORDARONE [Suspect]
     Indication: ARRHYTHMIA
     Dosage: 200 MG, QD
     Route: 048
     Dates: end: 20090328
  4. FLUINDIONE [Concomitant]
     Indication: ARRHYTHMIA
     Dosage: 15 MG, UNK
     Route: 048
  5. DOLIPRANE [Concomitant]
     Indication: ARTHRALGIA
     Dosage: UNK
  6. MACROGOL [Concomitant]
     Indication: CONSTIPATION
     Dosage: UNK

REACTIONS (10)
  - ABDOMINAL DISCOMFORT [None]
  - ABDOMINAL DISTENSION [None]
  - ABDOMINAL PAIN [None]
  - DIARRHOEA [None]
  - FLATULENCE [None]
  - HAEMOCONCENTRATION [None]
  - HYPERKALAEMIA [None]
  - HYPERTHYROIDISM [None]
  - RENAL FAILURE ACUTE [None]
  - VOMITING [None]
